FAERS Safety Report 8293331-9 (Version None)
Quarter: 2012Q2

REPORT INFORMATION
  Report Type: 
  Country: None (occurrence: None)
  Receive Date: 20120417
  Receipt Date: 20110523
  Transmission Date: 20120825
  Serious: No
  Sender: FDA-Public Use
  Company Number: US-ASTRAZENECA-2011SE32037

PATIENT
  Age: 68 Year
  Sex: Female

DRUGS (2)
  1. VIMOVO [Suspect]
     Route: 048
  2. NEXIUM [Suspect]
     Route: 048

REACTIONS (4)
  - MUSCULOSKELETAL PAIN [None]
  - HEADACHE [None]
  - FACIAL PAIN [None]
  - NECK PAIN [None]
